FAERS Safety Report 5363170-7 (Version None)
Quarter: 2007Q2

REPORT INFORMATION
  Report Type: 
  Country: None (occurrence: None)
  Receive Date: 20070620
  Receipt Date: 20070612
  Transmission Date: 20071010
  Serious: Yes (Other)
  Sender: FDA-Public Use
  Company Number: PHEH2007US03946

PATIENT
  Age: 76 Year
  Sex: Female
  Weight: 70.294 kg

DRUGS (6)
  1. ZELNORM [Suspect]
     Indication: IRRITABLE BOWEL SYNDROME
     Dosage: 6 MG, BID, ^ON AND OFF^
     Route: 048
     Dates: start: 20021105, end: 20070301
  2. LEVOXYL [Concomitant]
  3. ACIPHEX [Concomitant]
  4. ASPIRIN [Concomitant]
     Dosage: 81 MG, UNK
  5. ZETIA [Concomitant]
  6. ACYCLOVIR [Concomitant]
     Dosage: 400 MG, QD
     Dates: start: 20070306

REACTIONS (12)
  - AORTIC VALVE INCOMPETENCE [None]
  - BACK PAIN [None]
  - CARDIAC MURMUR [None]
  - CARDIAC VALVE DISEASE [None]
  - CHEST PAIN [None]
  - DIZZINESS [None]
  - DYSPNOEA EXERTIONAL [None]
  - EJECTION FRACTION DECREASED [None]
  - ELECTROCARDIOGRAM ST SEGMENT ABNORMAL [None]
  - FATIGUE [None]
  - HYPOAESTHESIA [None]
  - OEDEMA PERIPHERAL [None]
